FAERS Safety Report 19955178 (Version 1)
Quarter: 2021Q4

REPORT INFORMATION
  Report Type: Spontaneous
  Country: US (occurrence: US)
  Receive Date: 20211013
  Receipt Date: 20211013
  Transmission Date: 20220303
  Serious: Yes (Other)
  Sender: FDA-Public Use
  Company Number: US-DSJP-DSU-2021-133540AA

PATIENT
  Age: 43 Year
  Sex: Male

DRUGS (1)
  1. ENHERTU [Suspect]
     Active Substance: FAM-TRASTUZUMAB DERUXTECAN-NXKI
     Indication: HER2 positive gastric cancer
     Dosage: UNK
     Route: 065
     Dates: end: 20210930

REACTIONS (3)
  - Disease progression [Unknown]
  - Weight decreased [Unknown]
  - Decreased appetite [Unknown]
